FAERS Safety Report 20327649 (Version 2)
Quarter: 2022Q1

REPORT INFORMATION
  Report Type: Spontaneous
  Country: None (occurrence: PT)
  Receive Date: 20220112
  Receipt Date: 20220127
  Transmission Date: 20220423
  Serious: Yes (Other)
  Sender: FDA-Public Use
  Company Number: PT-AKCEA THERAPEUTICS, INC.-2022IS001005

PATIENT
  Age: 43 Year
  Sex: Female

DRUGS (5)
  1. TEGSEDI [Suspect]
     Active Substance: INOTERSEN SODIUM
     Indication: Product used for unknown indication
     Route: 065
     Dates: start: 20210415, end: 20211118
  2. DEVICE [Suspect]
     Active Substance: DEVICE
  3. GABAPENTIN [Concomitant]
     Active Substance: GABAPENTIN
     Route: 065
  4. OMEPRAZOLE [Concomitant]
     Active Substance: OMEPRAZOLE
     Route: 065
  5. DAGRAVIT /01709701/ [Concomitant]
     Route: 065

REACTIONS (4)
  - Autoimmune hypothyroidism [Unknown]
  - Hypersensitivity [Unknown]
  - Anti-thyroid antibody increased [Unknown]
  - Blood thyroid stimulating hormone increased [Recovering/Resolving]

NARRATIVE: CASE EVENT DATE: 20211118
